FAERS Safety Report 8389911-2 (Version None)
Quarter: 2012Q2

REPORT INFORMATION
  Report Type: 
  Country: None (occurrence: None)
  Receive Date: 20120522
  Receipt Date: 20120507
  Transmission Date: 20120825
  Serious: Yes (Hospitalization)
  Sender: FDA-Public Use
  Company Number: ENTC2012-0203

PATIENT
  Age: 72 Year
  Sex: Female

DRUGS (7)
  1. CLONAZEPAM [Suspect]
     Dosage: 0.3 MG, QD;
  2. TROSPIUM CHLORIDE [Suspect]
     Dosage: 40 MG (20 MG, 2 IN 1 D;
  3. PARLODEL [Suspect]
     Indication: PARKINSON'S DISEASE
     Dosage: 6 DF/DAY
  4. AMANTADINE HCL [Suspect]
     Indication: PARKINSON'S DISEASE
     Dosage: 30 MG (10 MG, 3 IN 1 D);
  5. ASCORBIC ACID [Suspect]
     Dosage: 2 DOSAGE FORM (1 DOSAGE FORM, 2 IN 1 D);
  6. STALEVO 100 [Suspect]
     Indication: PARKINSON'S DISEASE
     Dosage: 700/175/1200 MG/DAY;
  7. MODOPAR (LEVODOPA) [Suspect]
     Indication: PARKINSON'S DISEASE
     Dosage: 50/12.5 MG/DAY;

REACTIONS (6)
  - PULMONARY EMBOLISM [None]
  - ELECTROCARDIOGRAM T WAVE INVERSION [None]
  - ELECTROCARDIOGRAM QRS COMPLEX SHORTENED [None]
  - DILATATION VENTRICULAR [None]
  - ATRIAL FIBRILLATION [None]
  - DYSPNOEA EXERTIONAL [None]
